FAERS Safety Report 7874208-7 (Version None)
Quarter: 2011Q4

REPORT INFORMATION
  Report Type: 
  Country: None (occurrence: None)
  Receive Date: 20111030
  Receipt Date: 20110517
  Transmission Date: 20120403
  Serious: No
  Sender: FDA-Public Use
  Company Number: US-AMGEN-USASP2011025458

PATIENT
  Age: 40 Year
  Sex: Female
  Weight: 29.478 kg

DRUGS (7)
  1. OMEGA 3 FISH [Concomitant]
  2. METHOTREXATE [Concomitant]
  3. PREDNISONE [Concomitant]
  4. NORTREL                            /00318901/ [Concomitant]
  5. MELOXICAM [Concomitant]
  6. VITAMIN D [Concomitant]
  7. ENBREL [Suspect]
     Indication: PRODUCT USED FOR UNKNOWN INDICATION
     Dosage: 50 MG, QWK

REACTIONS (1)
  - VULVOVAGINAL MYCOTIC INFECTION [None]
